FAERS Safety Report 7363828-4 (Version None)
Quarter: 2011Q1

REPORT INFORMATION
  Report Type: 
  Country: None (occurrence: None)
  Receive Date: 20110321
  Receipt Date: 20110309
  Transmission Date: 20110831
  Serious: Yes (Other)
  Sender: FDA-Public Use
  Company Number: US-ROCHE-751333

PATIENT
  Sex: Female
  Weight: 47.6 kg

DRUGS (1)
  1. ACCUTANE [Suspect]
     Indication: ACNE
     Route: 048
     Dates: start: 19990220, end: 19990625

REACTIONS (6)
  - OSTEOPOROSIS [None]
  - CROHN'S DISEASE [None]
  - DEPRESSION [None]
  - ORAL HERPES [None]
  - INFLAMMATORY BOWEL DISEASE [None]
  - ANAL FISSURE [None]
